FAERS Safety Report 15126793 (Version 1)
Quarter: 2018Q3

REPORT INFORMATION
  Report Type: Spontaneous
  Country: US (occurrence: US)
  Receive Date: 20180710
  Receipt Date: 20180710
  Transmission Date: 20181010
  Serious: No
  Sender: FDA-Public Use
  Company Number: US-PERRIGO-17US024729

PATIENT
  Age: 0 Year
  Sex: Female
  Weight: 60.77 kg

DRUGS (5)
  1. MICONAZOLE 1 [Suspect]
     Active Substance: MICONAZOLE NITRATE
     Dosage: 1200 MG, SINGLE
     Route: 067
     Dates: start: 20180115, end: 20180115
  2. MICONAZOLE 1 [Suspect]
     Active Substance: MICONAZOLE NITRATE
     Indication: VULVOVAGINAL MYCOTIC INFECTION
     Dosage: 1 SMALL APPLICATION, UP TO TID
     Route: 061
     Dates: start: 20180108, end: 20180108
  3. MICONAZOLE 1 [Suspect]
     Active Substance: MICONAZOLE NITRATE
     Dosage: 1200 MG, SINGLE
     Route: 067
     Dates: start: 20180108, end: 20180108
  4. MICONAZOLE 1 [Suspect]
     Active Substance: MICONAZOLE NITRATE
     Indication: VULVOVAGINAL MYCOTIC INFECTION
     Dosage: 1200 MG, QD
     Route: 067
     Dates: start: 20170619, end: 20170620
  5. MICONAZOLE 1 [Suspect]
     Active Substance: MICONAZOLE NITRATE
     Dosage: 1 SMALL APPLICATION, UP TO TID
     Route: 061
     Dates: start: 20180115, end: 20180115

REACTIONS (4)
  - Drug administration error [Recovered/Resolved]
  - Expired product administered [Recovered/Resolved]
  - Back pain [Recovering/Resolving]
  - Drug ineffective [Unknown]

NARRATIVE: CASE EVENT DATE: 20170619
